FAERS Safety Report 16043720 (Version 2)
Quarter: 2019Q1

REPORT INFORMATION
  Report Type: Spontaneous
  Country: US (occurrence: US)
  Receive Date: 20190306
  Receipt Date: 20190312
  Transmission Date: 20190418
  Serious: Yes (Other)
  Sender: FDA-Public Use
  Company Number: US-ASTRAZENECA-2018SF33458

PATIENT
  Age: 22823 Day
  Sex: Female
  Weight: 108 kg

DRUGS (28)
  1. ESTRADIOL. [Concomitant]
     Active Substance: ESTRADIOL
  2. FLUTICASONE. [Concomitant]
     Active Substance: FLUTICASONE
  3. SERTRALINE [Concomitant]
     Active Substance: SERTRALINE HYDROCHLORIDE
  4. CARVEDILOL. [Concomitant]
     Active Substance: CARVEDILOL
  5. SUCRALFATE. [Concomitant]
     Active Substance: SUCRALFATE
  6. PRILOSEC OTC [Suspect]
     Active Substance: OMEPRAZOLE MAGNESIUM
     Route: 048
     Dates: start: 201007, end: 201301
  7. DIOVAN [Concomitant]
     Active Substance: VALSARTAN
  8. LORAZEPAM. [Concomitant]
     Active Substance: LORAZEPAM
  9. ZOLPIDEM TARTRATE. [Concomitant]
     Active Substance: ZOLPIDEM TARTRATE
  10. AMITRIPTYLINE [Concomitant]
     Active Substance: AMITRIPTYLINE
  11. PROTONIX [Suspect]
     Active Substance: PANTOPRAZOLE SODIUM
     Route: 048
     Dates: start: 20100719
  12. BUPROPION. [Concomitant]
     Active Substance: BUPROPION
  13. TRAZODONE [Concomitant]
     Active Substance: TRAZODONE HYDROCHLORIDE
  14. PROMETHAZINE [Concomitant]
     Active Substance: PROMETHAZINE\PROMETHAZINE HYDROCHLORIDE
  15. ASPIRIN. [Concomitant]
     Active Substance: ASPIRIN
  16. AZITHROMYCIN ANHYDROUS. [Concomitant]
     Active Substance: AZITHROMYCIN ANHYDROUS
  17. BUDEPRION [Concomitant]
     Active Substance: BUPROPION HYDROCHLORIDE
  18. ONDANSETRON [Concomitant]
     Active Substance: ONDANSETRON
  19. PRILOSEC [Suspect]
     Active Substance: OMEPRAZOLE MAGNESIUM
     Route: 048
     Dates: start: 201007, end: 201301
  20. PROTONIX [Suspect]
     Active Substance: PANTOPRAZOLE SODIUM
     Route: 065
     Dates: start: 201007, end: 201301
  21. PREDNISONE. [Concomitant]
     Active Substance: PREDNISONE
  22. LORAZEPAM. [Concomitant]
     Active Substance: LORAZEPAM
  23. LEVOTHYROXINE. [Concomitant]
     Active Substance: LEVOTHYROXINE
  24. AMBIEN [Concomitant]
     Active Substance: ZOLPIDEM TARTRATE
  25. RANITIDINE. [Concomitant]
     Active Substance: RANITIDINE
  26. PROTONIX [Suspect]
     Active Substance: PANTOPRAZOLE SODIUM
     Route: 065
     Dates: start: 2010, end: 2013
  27. PROTONIX [Suspect]
     Active Substance: PANTOPRAZOLE SODIUM
     Dosage: GENERIC
     Route: 065
     Dates: start: 20000717
  28. ESTRADIOL. [Concomitant]
     Active Substance: ESTRADIOL

REACTIONS (5)
  - Chronic kidney disease [Unknown]
  - Nephrogenic anaemia [Unknown]
  - Renal failure [Unknown]
  - Acute kidney injury [Unknown]
  - Tubulointerstitial nephritis [Unknown]

NARRATIVE: CASE EVENT DATE: 20130128
